FAERS Safety Report 5545351-2 (Version None)
Quarter: 2007Q4

REPORT INFORMATION
  Report Type: 
  Country: None (occurrence: None)
  Receive Date: 20071206
  Receipt Date: 20071206
  Transmission Date: 20080405
  Serious: Yes (Hospitalization)
  Sender: FDA-Public Use
  Company Number: None

PATIENT
  Sex: Male

DRUGS (2)
  1. TOPOTECAN 4MG VIAL -GSK [Suspect]
     Indication: OESOPHAGEAL CARCINOMA
     Dosage: 7.5 MG QWEEK IV
     Route: 042
     Dates: start: 20071121
  2. TOPOTECAN 4MG VIAL -GSK [Suspect]
     Indication: OESOPHAGEAL CARCINOMA
     Dosage: 7.5 MG QWEEK IV
     Route: 042
     Dates: start: 20071128

REACTIONS (4)
  - HAEMATEMESIS [None]
  - NEUTROPENIA [None]
  - OESOPHAGEAL CANCER METASTATIC [None]
  - THROMBOCYTOPENIA [None]
